FAERS Safety Report 25498679 (Version 3)
Quarter: 2025Q3

REPORT INFORMATION
  Report Type: Spontaneous
  Country: US (occurrence: US)
  Receive Date: 20250701
  Receipt Date: 20250730
  Transmission Date: 20251021
  Serious: Yes (Other)
  Sender: ACCORD
  Company Number: US-Accord-489182

PATIENT
  Age: 74 Year
  Sex: Female
  Weight: 39.01 kg

DRUGS (3)
  1. LEVOTHYROXINE [Suspect]
     Active Substance: LEVOTHYROXINE
     Indication: Thyroid disorder
     Dates: start: 20250130, end: 2025
  2. TIROSINT [Suspect]
     Active Substance: LEVOTHYROXINE SODIUM
     Indication: Thyroid disorder
  3. LEVOTHYROXINE [Concomitant]
     Active Substance: LEVOTHYROXINE
     Indication: Thyroid disorder
     Dates: start: 202501

REACTIONS (31)
  - Feeling abnormal [Recovering/Resolving]
  - Pruritus [Recovering/Resolving]
  - Sympathomimetic effect [Recovering/Resolving]
  - Malaise [Recovering/Resolving]
  - Nausea [Recovering/Resolving]
  - Migraine [Recovering/Resolving]
  - Vertigo [Recovering/Resolving]
  - Insomnia [Recovering/Resolving]
  - Anxiety [Recovering/Resolving]
  - Hypoaesthesia [Unknown]
  - Vision blurred [Unknown]
  - Hypersensitivity [Unknown]
  - Gait disturbance [Unknown]
  - Blood cholesterol increased [Unknown]
  - White blood cell count decreased [Unknown]
  - Mental disorder [Unknown]
  - Hypotension [Unknown]
  - Fatigue [Unknown]
  - Asthenia [Unknown]
  - Facial paralysis [Unknown]
  - Panic attack [Unknown]
  - Disturbance in attention [Unknown]
  - Bruxism [Unknown]
  - Product substitution issue [Unknown]
  - Drug ineffective [Unknown]
  - Muscle tightness [Unknown]
  - Muscle rigidity [Unknown]
  - Weight decreased [Unknown]
  - Feeding disorder [Unknown]
  - Somnolence [Unknown]
  - Treatment noncompliance [Unknown]

NARRATIVE: CASE EVENT DATE: 20250101
